FAERS Safety Report 24060453 (Version 1)
Quarter: 2024Q3

REPORT INFORMATION
  Report Type: Spontaneous
  Country: BE (occurrence: BE)
  Receive Date: 20240708
  Receipt Date: 20240708
  Transmission Date: 20241017
  Serious: Yes (Other)
  Sender: MYLAN
  Company Number: BE-MYLANLABS-2024M1062315

PATIENT
  Age: 33 Year
  Sex: Male

DRUGS (4)
  1. LEVETIRACETAM [Suspect]
     Active Substance: LEVETIRACETAM
     Indication: Seizure
     Dosage: UNK
     Route: 065
  2. LEVETIRACETAM [Suspect]
     Active Substance: LEVETIRACETAM
     Dosage: UNK (INCREASED DOSE)
     Route: 065
  3. BEVACIZUMAB [Concomitant]
     Active Substance: BEVACIZUMAB
     Indication: Brain radiation necrosis
     Dosage: 7.5 MILLIGRAM/KILOGRAM (EVERY 4 WEEKS)
     Route: 042
  4. BEVACIZUMAB [Concomitant]
     Active Substance: BEVACIZUMAB
     Dosage: 100 MILLIGRAM (EVERY 4 WEEKS)
     Route: 042

REACTIONS (1)
  - Drug ineffective [Unknown]
